FAERS Safety Report 16564789 (Version 2)
Quarter: 2020Q1

REPORT INFORMATION
  Report Type: Spontaneous
  Country: JP (occurrence: JP)
  Receive Date: 20190712
  Receipt Date: 20200203
  Transmission Date: 20200409
  Serious: Yes (Other)
  Sender: FDA-Public Use
  Company Number: JP-ROCHE-2351331

PATIENT
  Age: 14 Year
  Sex: Male

DRUGS (5)
  1. HIRUDOID [Concomitant]
     Active Substance: GLYCOSAMINOGLYCANS
     Indication: ASTEATOSIS
     Dosage: UNK
     Route: 062
     Dates: start: 20190305
  2. SPIRAZON [Concomitant]
     Indication: ECZEMA
     Dosage: UNK
     Route: 062
     Dates: start: 20190305
  3. ONON [Concomitant]
     Active Substance: PRANLUKAST
     Indication: RHINITIS ALLERGIC
     Dosage: 112.5 MG, BID
     Route: 048
     Dates: start: 20190305
  4. XOLAIR [Suspect]
     Active Substance: OMALIZUMAB
     Indication: URTICARIA CHRONIC
     Route: 058
     Dates: start: 20190518, end: 20190518
  5. ALLERMIST [Concomitant]
     Active Substance: FLUTICASONE FUROATE
     Indication: RHINITIS ALLERGIC
     Dosage: 27.5 UG, BID
     Route: 045
     Dates: start: 20190305

REACTIONS (5)
  - Malaise [Recovered/Resolved]
  - Pallor [Unknown]
  - Urticaria [Recovered/Resolved]
  - Presyncope [Recovered/Resolved]
  - Depressed level of consciousness [Recovering/Resolving]

NARRATIVE: CASE EVENT DATE: 20190518
